FAERS Safety Report 7386034-6 (Version None)
Quarter: 2011Q1

REPORT INFORMATION
  Report Type: 
  Country: None (occurrence: None)
  Receive Date: 20110331
  Receipt Date: 20110317
  Transmission Date: 20110831
  Serious: Yes (Other)
  Sender: FDA-Public Use
  Company Number: US-ELI_LILLY_AND_COMPANY-US201101000518

PATIENT
  Sex: Female

DRUGS (5)
  1. FORTEO [Suspect]
     Dosage: 20 UG, DAILY (1/D)
     Route: 065
  2. CALCIUM [Concomitant]
  3. FORTEO [Suspect]
     Dosage: 20 UG, DAILY (1/D)
     Route: 065
  4. FORTEO [Suspect]
     Indication: OSTEOPOROSIS
     Dosage: 20 UG, DAILY (1/D)
     Route: 065
  5. FORTEO [Suspect]
     Dosage: 20 UG, DAILY (1/D)

REACTIONS (10)
  - FIBROMYALGIA [None]
  - POST PROCEDURAL HAEMORRHAGE [None]
  - BONE DENSITY DECREASED [None]
  - MEMORY IMPAIRMENT [None]
  - ARTHROPATHY [None]
  - BLOOD CALCIUM INCREASED [None]
  - NAUSEA [None]
  - HYSTERECTOMY [None]
  - GENERALISED OEDEMA [None]
  - BLADDER PROLAPSE [None]
